FAERS Safety Report 11152966 (Version 1)
Quarter: 2015Q2

REPORT INFORMATION
  Report Type: Report from Study
  Country: US (occurrence: None)
  Receive Date: 20150526
  Receipt Date: 20150526
  Transmission Date: 20150821
  Serious: Yes (Hospitalization)
  Sender: FDA-Public Use
  Company Number: US-2009VAL000343

PATIENT
  Age: 84 Year
  Sex: Female
  Weight: 61.4 kg

DRUGS (13)
  1. FLUTICASONE W/SALMETEROL (FLUTICASONE, SALMETEROL) INHALATION POWDER, 250/50UG [Concomitant]
     Active Substance: FLUTICASONE PROPIONATE\SALMETEROL XINAFOATE
  2. FUROSEMIDE. [Concomitant]
     Active Substance: FUROSEMIDE
  3. TIOPROPIUM [Concomitant]
  4. CITRACAL (CALCIUM CITRATE) [Concomitant]
     Active Substance: CALCIUM CITRATE
  5. METAMUCIL (PLANTAGO OVATA) [Concomitant]
  6. CALCIUM [Concomitant]
     Active Substance: CALCIUM
  7. POTASSIUM CHLORIDE. [Concomitant]
     Active Substance: POTASSIUM CHLORIDE
  8. ANASTROZOLE (ANASTROZOLE) [Suspect]
     Active Substance: ANASTROZOLE
     Indication: BREAST CANCER
     Route: 048
     Dates: start: 20090311
  9. LEVOTHYROXINE [Concomitant]
     Active Substance: LEVOTHYROXINE
  10. HERBAL EXTRACT NOS [Concomitant]
     Active Substance: HERBALS
  11. OMEPRAZOLE. [Concomitant]
     Active Substance: OMEPRAZOLE
  12. BENAZEPRIL HYDROCHLORIDE. [Suspect]
     Active Substance: BENAZEPRIL HYDROCHLORIDE
     Indication: BREAST CANCER
  13. DILTIAZEM (DILTIAZEM) [Suspect]
     Active Substance: DILTIAZEM
     Indication: PRODUCT USED FOR UNKNOWN INDICATION

REACTIONS (12)
  - Contusion [None]
  - Myalgia [None]
  - Red blood cell count decreased [None]
  - Haemoglobin decreased [None]
  - Blood sodium decreased [None]
  - Syncope [None]
  - Mitral valve incompetence [None]
  - Haematocrit decreased [None]
  - Ventricular arrhythmia [None]
  - Extrasystoles [None]
  - Fall [None]
  - Arthralgia [None]

NARRATIVE: CASE EVENT DATE: 20090519
